FAERS Safety Report 6877777-9 (Version None)
Quarter: 2010Q3

REPORT INFORMATION
  Report Type: 
  Country: None (occurrence: None)
  Receive Date: 20100727
  Receipt Date: 20100222
  Transmission Date: 20110219
  Serious: No
  Sender: FDA-Public Use
  Company Number: US-ABBOTT-10P-163-0623552-00

PATIENT
  Age: 61 Year
  Sex: Female

DRUGS (7)
  1. SYNTHROID [Suspect]
     Indication: THYROID MASS
     Dosage: QD
     Route: 048
     Dates: start: 20090801, end: 20091001
  2. SYNTHROID [Suspect]
     Route: 048
     Dates: start: 20091001, end: 20091201
  3. SYNTHROID [Suspect]
     Dosage: 1/2 TAB
     Route: 048
     Dates: start: 20091201
  4. NORVASC [Concomitant]
     Indication: HYPERTENSION
     Route: 048
  5. CALCIUM [Concomitant]
     Indication: MINERAL SUPPLEMENTATION
     Dosage: UNKNOWN STRENGTH
     Route: 048
  6. CO-QUE-10 [Concomitant]
     Indication: MEDICAL DIET
     Route: 048
  7. FISH OIL [Concomitant]
     Indication: MEDICAL DIET
     Dosage: UNKNOWN STRENGTH
     Route: 048

REACTIONS (3)
  - FLAT AFFECT [None]
  - LACK OF SATIETY [None]
  - SOMNOLENCE [None]
